FAERS Safety Report 6926230-2 (Version None)
Quarter: 2010Q3

REPORT INFORMATION
  Report Type: 
  Country: None (occurrence: None)
  Receive Date: 20100811
  Receipt Date: 20100728
  Transmission Date: 20110219
  Serious: Yes (Hospitalization, Other)
  Sender: FDA-Public Use
  Company Number: 015800

PATIENT
  Sex: Male

DRUGS (21)
  1. LACOSAMIDE [Suspect]
     Indication: DIABETIC NEUROPATHY
     Dosage: (300 MG BID ORAL)
     Route: 048
     Dates: start: 20040714
  2. AMLODIPIN /00972403/ [Concomitant]
  3. CARVEDILOL [Concomitant]
  4. GLIMEPIRIDE [Concomitant]
  5. TORASEMID [Concomitant]
  6. DECORTIN [Concomitant]
  7. TAMSULOSIN HCL [Concomitant]
  8. AERIUS /01398501/ [Concomitant]
  9. VILDAGLIPTIN [Concomitant]
  10. SIOFOR [Concomitant]
  11. GABAPENTIN [Concomitant]
  12. SIMVASTATIN [Concomitant]
  13. VITALUX /01586901/ [Concomitant]
  14. ASPIRIN /01428701/ [Concomitant]
  15. ENABETA [Concomitant]
  16. PLAVIX [Concomitant]
  17. FLUVASTATIN [Concomitant]
  18. BISOPROLOL [Concomitant]
  19. RAMIPRIL [Concomitant]
  20. PANTOZOL /01263202/ [Concomitant]
  21. CALCIUM [Concomitant]

REACTIONS (3)
  - DYSPNOEA [None]
  - SYNCOPE [None]
  - VERTIGO [None]
